FAERS Safety Report 17091431 (Version 2)
Quarter: 2019Q4

REPORT INFORMATION
  Report Type: Spontaneous
  Country: US (occurrence: US)
  Receive Date: 20191129
  Receipt Date: 20191217
  Transmission Date: 20200122
  Serious: Yes (Death, Life-Threatening, Hospitalization, Other)
  Sender: FDA-Public Use
  Company Number: US-B.I. PHARMACEUTICALS,INC./RIDGEFIELD-2019-BI-116199

PATIENT
  Sex: Male

DRUGS (1)
  1. GLYXAMBI [Suspect]
     Active Substance: EMPAGLIFLOZIN\LINAGLIPTIN
     Indication: TYPE 2 DIABETES MELLITUS
     Route: 048
     Dates: start: 20161213

REACTIONS (14)
  - Congestive cardiomyopathy [Fatal]
  - Sepsis [Unknown]
  - Gait disturbance [Unknown]
  - Cardiac arrest [Unknown]
  - Fatigue [Unknown]
  - Orchitis [Unknown]
  - Pulmonary embolism [Fatal]
  - Arteriosclerosis coronary artery [Fatal]
  - Asthenia [Unknown]
  - Deep vein thrombosis [Fatal]
  - Lactic acidosis [Unknown]
  - Dysarthria [Unknown]
  - Memory impairment [Unknown]
  - Fournier^s gangrene [Unknown]

NARRATIVE: CASE EVENT DATE: 201710
